FAERS Safety Report 8197695-6 (Version None)
Quarter: 2012Q1

REPORT INFORMATION
  Report Type: 
  Country: None (occurrence: None)
  Receive Date: 20120307
  Receipt Date: 20120224
  Transmission Date: 20120608
  Serious: Yes (Death)
  Sender: FDA-Public Use
  Company Number: UTC-015973

PATIENT
  Age: 47 Year
  Sex: Male

DRUGS (4)
  1. OXYGEN (OXYGEN) [Concomitant]
  2. COUMADIN [Concomitant]
  3. VIAGRA [Concomitant]
  4. REMODULIN [Suspect]
     Dosage: 18.72 UG/KG (0.013 UG/KG, 1 IN 1 MIN), INTRAVENOUS
     Route: 042
     Dates: start: 20080101

REACTIONS (1)
  - DEATH [None]
